FAERS Safety Report 13818612 (Version 1)
Quarter: 2017Q3

REPORT INFORMATION
  Report Type: Spontaneous
  Country: US (occurrence: US)
  Receive Date: 20170731
  Receipt Date: 20170731
  Transmission Date: 20171127
  Serious: No
  Sender: FDA-Public Use
  Company Number: US-TEIKOKU PHARMA USA-TPU2017-00281

PATIENT
  Sex: Male
  Weight: 83.08 kg

DRUGS (2)
  1. ADVIL [Concomitant]
     Active Substance: IBUPROFEN
     Indication: BACK PAIN
  2. LIDODERM [Suspect]
     Active Substance: LIDOCAINE
     Indication: BACK PAIN
     Dosage: APPLIED PATCH TO LOWER BACK FOR 8 TO 12 HOURS, REMOVED PATCH UNTIL THE NEXT DAY
     Route: 061

REACTIONS (6)
  - Hyperlipidaemia [Unknown]
  - Type 2 diabetes mellitus [Unknown]
  - Weight decreased [Not Recovered/Not Resolved]
  - Iron deficiency [Unknown]
  - Arthritis [Unknown]
  - Haemorrhoid operation [Unknown]

NARRATIVE: CASE EVENT DATE: 2014
